FAERS Safety Report 4646406-7 (Version None)
Quarter: 2005Q2

REPORT INFORMATION
  Report Type: 
  Country: None (occurrence: None)
  Receive Date: 20050427
  Receipt Date: 20040917
  Transmission Date: 20051028
  Serious: No
  Sender: FDA-Public Use
  Company Number: US-GLAXOSMITHKLINE-A0526209A

PATIENT
  Sex: Female

DRUGS (5)
  1. SEREVENT [Suspect]
     Indication: ASTHMA
     Route: 055
  2. PULMICORT [Concomitant]
  3. ALBUTEROL [Concomitant]
  4. BLOOD PRESSURE MED [Concomitant]
  5. SYNTHROID [Concomitant]

REACTIONS (2)
  - DRUG INEFFECTIVE [None]
  - PHARMACEUTICAL PRODUCT COMPLAINT [None]
